FAERS Safety Report 8478856-5 (Version None)
Quarter: 2012Q2

REPORT INFORMATION
  Report Type: 
  Country: None (occurrence: None)
  Receive Date: 20120629
  Receipt Date: 20120626
  Transmission Date: 20120825
  Serious: Yes (Hospitalization, Other)
  Sender: FDA-Public Use
  Company Number: US-PFIZER INC-2012120209

PATIENT
  Sex: Female
  Weight: 50.794 kg

DRUGS (10)
  1. LYRICA [Suspect]
     Indication: ARTHRITIS
     Dosage: 75 MG, 2X/DAY
     Route: 048
  2. AMITRIPTYLINE [Concomitant]
     Dosage: 10 MG, 1X/DAY
  3. ALBUTEROL [Concomitant]
     Indication: ASTHMA
     Dosage: UNK, AS NEEDED
  4. METOPROLOL [Concomitant]
     Dosage: 25 MG, 2X/DAY
  5. LYRICA [Suspect]
     Indication: NERVE INJURY
     Dosage: 150 MG, 2X/DAY
     Route: 048
     Dates: start: 20050101, end: 20120201
  6. PIROXICAM [Concomitant]
     Dosage: 20 MG, 1X/DAY
  7. TIZANIDINE [Concomitant]
     Dosage: 4 MG, 4X/DAY
  8. SINGULAIR [Concomitant]
     Dosage: 10 MG, 1X/DAY
  9. RAMIPRIL [Concomitant]
     Dosage: 2.5 MG, 1X/DAY
  10. ADVAIR DISKUS 100/50 [Concomitant]
     Indication: ASTHMA
     Dosage: 250/50 MG, UNK

REACTIONS (9)
  - BACK PAIN [None]
  - ABDOMINAL SEPSIS [None]
  - INCISION SITE COMPLICATION [None]
  - HAEMORRHAGE [None]
  - SEPSIS [None]
  - RENAL FAILURE ACUTE [None]
  - CARDIAC DISORDER [None]
  - FALL [None]
  - LIVER DISORDER [None]
